FAERS Safety Report 8616927-0 (Version None)
Quarter: 2012Q3

REPORT INFORMATION
  Report Type: 
  Country: None (occurrence: None)
  Receive Date: 20120823
  Receipt Date: 20120810
  Transmission Date: 20120928
  Serious: Yes (Hospitalization, Other)
  Sender: FDA-Public Use
  Company Number: US-009507513-2012SP011795

PATIENT

DRUGS (1)
  1. NUVARING [Suspect]
     Indication: CONTRACEPTION
     Dosage: UNK
     Route: 067
     Dates: start: 20090101, end: 20090315

REACTIONS (17)
  - DEEP VEIN THROMBOSIS [None]
  - PAIN IN EXTREMITY [None]
  - VULVOVAGINAL CANDIDIASIS [None]
  - DIARRHOEA [None]
  - LUNG NEOPLASM [None]
  - PULMONARY EMBOLISM [None]
  - CHEST PAIN [None]
  - TRICUSPID VALVE INCOMPETENCE [None]
  - COUGH [None]
  - PHLEBITIS [None]
  - ANXIETY [None]
  - ATRIAL FIBRILLATION [None]
  - CHEST DISCOMFORT [None]
  - DYSPNOEA EXERTIONAL [None]
  - EYE HAEMORRHAGE [None]
  - DYSPEPSIA [None]
  - RHINITIS ALLERGIC [None]
